FAERS Safety Report 23096208 (Version 1)
Quarter: 2023Q4

REPORT INFORMATION
  Report Type: Spontaneous
  Country: US (occurrence: None)
  Receive Date: 20231019
  Receipt Date: 20231019
  Transmission Date: 20240110
  Serious: Yes (Hospitalization)
  Sender: FDA-Public Use
  Company Number: None

PATIENT
  Age: 65 Year
  Sex: Female
  Weight: 61 kg

DRUGS (2)
  1. APIXABAN [Suspect]
     Active Substance: APIXABAN
     Dates: end: 20230106
  2. ASPIRIN 81MG [Suspect]
     Active Substance: ASPIRIN
     Dates: start: 20141015

REACTIONS (5)
  - Therapy interrupted [None]
  - Anaemia [None]
  - Faeces discoloured [None]
  - Abdominal pain [None]
  - Red blood cell transfusion [None]

NARRATIVE: CASE EVENT DATE: 20230217
